FAERS Safety Report 5098813-9 (Version None)
Quarter: 2006Q3

REPORT INFORMATION
  Report Type: 
  Country: None (occurrence: None)
  Receive Date: 20060907
  Receipt Date: 20060622
  Transmission Date: 20061208
  Serious: Yes (Other)
  Sender: FDA-Public Use
  Company Number: DE-ROCHE-452838

PATIENT
  Sex: Female

DRUGS (2)
  1. PEG-INTERFERON ALFA NOS [Suspect]
     Indication: HEPATITIS C
     Route: 065
  2. RIBAVIRIN [Suspect]
     Indication: HEPATITIS C
     Route: 065

REACTIONS (1)
  - VISUAL FIELD DEFECT [None]
